FAERS Safety Report 4902654-X (Version None)
Quarter: 2006Q1

REPORT INFORMATION
  Report Type: 
  Country: None (occurrence: None)
  Receive Date: 20060207
  Receipt Date: 20060201
  Transmission Date: 20060701
  Serious: Yes (Other)
  Sender: FDA-Public Use
  Company Number: JP-AVENTIS-200610355JP

PATIENT
  Age: 65 Year
  Sex: Female

DRUGS (3)
  1. TAXOTERE [Suspect]
     Route: 041
  2. FLUOROURACIL [Concomitant]
  3. CISPLATIN [Concomitant]

REACTIONS (1)
  - HALLUCINATION [None]
